FAERS Safety Report 6302208-7 (Version None)
Quarter: 2009Q3

REPORT INFORMATION
  Report Type: 
  Country: None (occurrence: None)
  Receive Date: 20090810
  Receipt Date: 20090730
  Transmission Date: 20100115
  Serious: Yes (Other)
  Sender: FDA-Public Use
  Company Number: US-BIOGENIDEC-2005BI021223

PATIENT
  Age: 51 Year
  Sex: Female

DRUGS (25)
  1. AVONEX [Suspect]
     Indication: MULTIPLE SCLEROSIS
     Route: 030
     Dates: start: 20000601, end: 20030801
  2. AVONEX [Suspect]
     Route: 030
     Dates: start: 20030801
  3. HERBAVISION LUTEIN AND BILLBERRY [Concomitant]
     Indication: DRUG USE FOR UNKNOWN INDICATION
  4. B-2 [Concomitant]
     Indication: DRUG USE FOR UNKNOWN INDICATION
  5. VITAMIN B-12 [Concomitant]
     Indication: DRUG USE FOR UNKNOWN INDICATION
  6. LECITHIN [Concomitant]
     Indication: DRUG USE FOR UNKNOWN INDICATION
  7. BEE POLLEN COMPLEX [Concomitant]
     Indication: DRUG USE FOR UNKNOWN INDICATION
  8. DIET SMART WITH EBCB [Concomitant]
     Indication: DRUG USE FOR UNKNOWN INDICATION
  9. CRANBERRY CONCENTRATE [Concomitant]
     Indication: DRUG USE FOR UNKNOWN INDICATION
  10. FISH OIL [Concomitant]
     Indication: DRUG USE FOR UNKNOWN INDICATION
  11. ASCORBIC ACID [Concomitant]
     Indication: DRUG USE FOR UNKNOWN INDICATION
  12. CALCIUM [Concomitant]
     Indication: DRUG USE FOR UNKNOWN INDICATION
  13. GARLIC [Concomitant]
     Indication: DRUG USE FOR UNKNOWN INDICATION
  14. NATURAL AMINO LIQUID [Concomitant]
     Indication: DRUG USE FOR UNKNOWN INDICATION
  15. ALOE GEL [Concomitant]
     Indication: DRUG USE FOR UNKNOWN INDICATION
  16. FLAX SEED [Concomitant]
     Indication: DRUG USE FOR UNKNOWN INDICATION
  17. POTASSIUM CHLORIDE [Concomitant]
     Indication: DRUG USE FOR UNKNOWN INDICATION
  18. ASPIRIN [Concomitant]
     Indication: DRUG USE FOR UNKNOWN INDICATION
  19. ECHINACEA [Concomitant]
     Indication: DRUG USE FOR UNKNOWN INDICATION
  20. EVENING PRIMROSE [Concomitant]
     Indication: DRUG USE FOR UNKNOWN INDICATION
  21. ASTRAGALUS [Concomitant]
     Indication: DRUG USE FOR UNKNOWN INDICATION
  22. TAURINE [Concomitant]
     Indication: DRUG USE FOR UNKNOWN INDICATION
  23. SHARK CARTILAGE [Concomitant]
     Indication: DRUG USE FOR UNKNOWN INDICATION
  24. ACIDOPHILUS [Concomitant]
     Indication: DRUG USE FOR UNKNOWN INDICATION
  25. CIPRO [Concomitant]
     Indication: DRUG USE FOR UNKNOWN INDICATION

REACTIONS (2)
  - BASAL CELL CARCINOMA [None]
  - SCAR [None]
